FAERS Safety Report 4408062-2 (Version None)
Quarter: 2004Q3

REPORT INFORMATION
  Report Type: 
  Country: None (occurrence: None)
  Receive Date: 20040726
  Receipt Date: 20040721
  Transmission Date: 20050211
  Serious: Yes (Life-Threatening, Hospitalization, Other)
  Sender: FDA-Public Use
  Company Number: US-MERCK-0407USA01683

PATIENT
  Age: 53 Year
  Sex: Female
  Weight: 57 kg

DRUGS (17)
  1. ACEBUTOLOL [Concomitant]
     Indication: MITRAL VALVE PROLAPSE
     Route: 048
  2. TYLENOL W/ CODEINE [Concomitant]
     Route: 048
  3. AUGMENTIN '250' [Concomitant]
     Indication: SEPSIS
     Route: 048
     Dates: start: 20031103, end: 20031101
  4. AUGMENTIN '250' [Concomitant]
     Route: 065
     Dates: start: 20031108, end: 20031113
  5. ASPIRIN [Concomitant]
     Indication: OSTEOARTHRITIS
     Route: 048
  6. LIPITOR [Concomitant]
     Indication: HYPERLIPIDAEMIA
     Route: 048
  7. CALCIUM (UNSPECIFIED) AND VITAMIN D (UNSPECIFIED) [Concomitant]
     Route: 065
  8. FLEXERIL [Concomitant]
     Indication: MUSCLE SPASMS
     Route: 048
     Dates: start: 20031101
  9. PREMARIN [Concomitant]
     Route: 065
  10. FERROUS SULFATE [Concomitant]
     Route: 048
  11. FOLIC ACID [Concomitant]
     Route: 048
  12. PROVERA [Concomitant]
     Route: 065
  13. MAXALT [Concomitant]
     Indication: MIGRAINE
     Route: 048
  14. VIOXX [Suspect]
     Indication: ARTHRALGIA
     Route: 048
     Dates: start: 20031103, end: 20031106
  15. TRAZODONE HYDROCHLORIDE [Concomitant]
     Route: 065
  16. EFFEXOR XR [Concomitant]
     Indication: DEPRESSION
     Route: 048
  17. VITAMINS (UNSPECIFIED) [Concomitant]
     Route: 065

REACTIONS (5)
  - CARDIAC FAILURE CONGESTIVE [None]
  - DIARRHOEA [None]
  - FAECAL OCCULT BLOOD POSITIVE [None]
  - HYPERTENSION [None]
  - HYPOTHYROIDISM [None]
